FAERS Safety Report 5513899-2 (Version None)
Quarter: 2007Q4

REPORT INFORMATION
  Report Type: 
  Country: None (occurrence: None)
  Receive Date: 20071113
  Receipt Date: 20071106
  Transmission Date: 20080405
  Serious: Yes (Other)
  Sender: FDA-Public Use
  Company Number: US-BAYER-200713909BWH

PATIENT
  Age: 78 Year
  Sex: Female
  Weight: 81 kg

DRUGS (15)
  1. NEXAVAR [Suspect]
     Indication: RENAL CELL CARCINOMA STAGE UNSPECIFIED
     Dosage: TOTAL DAILY DOSE: 800 MG  UNIT DOSE: 200 MG
     Route: 048
     Dates: start: 20070201
  2. NEXAVAR [Suspect]
     Dosage: UNIT DOSE: 200 MG
     Route: 048
     Dates: start: 20070601
  3. INSULIN [Concomitant]
  4. LANTUS [Concomitant]
  5. NEXIUM [Concomitant]
  6. ZETIA [Concomitant]
  7. ACTOS [Concomitant]
  8. HYZAAR [Concomitant]
  9. AMLODIPINE [Concomitant]
  10. DICYCLOMINE [Concomitant]
  11. NEURONTIN [Concomitant]
  12. CLONAZEPAM [Concomitant]
  13. LEVOTHYROXINE SODIUM [Concomitant]
  14. FLAX SEED OIL [Concomitant]
  15. FISH OIL [Concomitant]

REACTIONS (15)
  - ABDOMINAL PAIN [None]
  - ALOPECIA [None]
  - ANOREXIA [None]
  - ASTHENIA [None]
  - BLOOD GLUCOSE DECREASED [None]
  - DRY SKIN [None]
  - FATIGUE [None]
  - HYPERHIDROSIS [None]
  - HYPOAESTHESIA FACIAL [None]
  - HYPOGLYCAEMIA [None]
  - ORAL PAIN [None]
  - PAIN [None]
  - PARAESTHESIA ORAL [None]
  - PETECHIAE [None]
  - RASH ERYTHEMATOUS [None]
